FAERS Safety Report 12274995 (Version 1)
Quarter: 2016Q2

REPORT INFORMATION
  Report Type: Spontaneous
  Country: US (occurrence: US)
  Receive Date: 20160415
  Receipt Date: 20160415
  Transmission Date: 20160815
  Serious: No
  Sender: FDA-Public Use
  Company Number: US-ALLERGAN-1523086US

PATIENT
  Age: 24 Year
  Sex: Female

DRUGS (4)
  1. LATISSE [Suspect]
     Active Substance: BIMATOPROST
     Dosage: UNK
     Dates: start: 20151109
  2. ALLEGRA-D                          /01367401/ [Concomitant]
     Indication: SEASONAL ALLERGY
     Route: 048
  3. ZADITOR                            /00495201/ [Concomitant]
     Indication: SEASONAL ALLERGY
     Route: 047
  4. LATISSE [Suspect]
     Active Substance: BIMATOPROST
     Indication: GROWTH OF EYELASHES
     Dosage: 1-2 DROPS
     Dates: start: 2014

REACTIONS (9)
  - Wrong technique in product usage process [Unknown]
  - Eyelid irritation [Recovered/Resolved]
  - Eyelid skin dryness [Recovered/Resolved]
  - Off label use [Unknown]
  - Erythema of eyelid [Recovered/Resolved]
  - Erythema [Unknown]
  - Eye swelling [Recovered/Resolved]
  - Eyelids pruritus [Unknown]
  - Skin irritation [Unknown]

NARRATIVE: CASE EVENT DATE: 2015
